FAERS Safety Report 15660537 (Version 1)
Quarter: 2018Q4

REPORT INFORMATION
  Report Type: Spontaneous
  Country: US (occurrence: US)
  Receive Date: 20181115
  Receipt Date: 20181115
  Transmission Date: 20190205
  Serious: Yes (Hospitalization)
  Sender: FDA-Public Use
  Company Number: None

PATIENT
  Age: 45 Year
  Sex: Male
  Weight: 68 kg

DRUGS (1)
  1. MEMANTINE HYDROCHLORIDE (102290) [Suspect]
     Active Substance: MEMANTINE HYDROCHLORIDE
     Dates: end: 20180312

REACTIONS (5)
  - Pancreatitis chronic [None]
  - Sepsis [None]
  - Pyrexia [None]
  - Pancreatic abscess [None]
  - Tachycardia [None]

NARRATIVE: CASE EVENT DATE: 20180406
